FAERS Safety Report 8787820 (Version 4)
Quarter: 2013Q3

REPORT INFORMATION
  Report Type: Report from Study
  Country: US (occurrence: US)
  Receive Date: 20120914
  Receipt Date: 20130812
  Transmission Date: 20140515
  Serious: No
  Sender: FDA-Public Use
  Company Number: US-VERTEX PHARMACEUTICAL INC.-AE-2012-005012

PATIENT
  Age: 50 Year
  Sex: Female
  Weight: 75 kg

DRUGS (4)
  1. VX-950 (TELAPREVIR) [Suspect]
     Indication: HEPATITIS C
     Dosage: 750 MG, TID
     Route: 048
     Dates: start: 20111212, end: 20120307
  2. RIBAVIRIN [Suspect]
     Indication: HEPATITIS C
     Dosage: 600 MG, UNK
     Route: 048
     Dates: start: 20111212, end: 20121114
  3. PEGASYS [Suspect]
     Indication: HEPATITIS C
     Dosage: 180 ?G, UNK
     Route: 058
     Dates: start: 20111212, end: 20121114
  4. ALBUTEROL [Concomitant]

REACTIONS (12)
  - Dyspnoea [Recovered/Resolved]
  - Depression [Recovered/Resolved]
  - White blood cell count decreased [Recovered/Resolved]
  - Abdominal pain [Recovered/Resolved]
  - Irritability [Recovered/Resolved]
  - Alopecia [Recovered/Resolved]
  - Weight increased [Recovered/Resolved]
  - Malaise [Recovered/Resolved]
  - Dry mouth [Recovered/Resolved]
  - Dry skin [Recovered/Resolved]
  - Anaemia [Recovered/Resolved]
  - Nausea [Recovered/Resolved]
